FAERS Safety Report 6715551-4 (Version None)
Quarter: 2010Q2

REPORT INFORMATION
  Report Type: 
  Country: None (occurrence: None)
  Receive Date: 20100507
  Receipt Date: 20100428
  Transmission Date: 20101027
  Serious: Yes (Hospitalization)
  Sender: FDA-Public Use
  Company Number: GB-ROCHE-597646

PATIENT
  Weight: 70 kg

DRUGS (3)
  1. CAPECITABINE [Suspect]
     Indication: BREAST CANCER
     Dosage: STRENGTH: 500MG, 150MG
     Route: 048
     Dates: start: 20081029
  2. EPIRUBICIN [Suspect]
     Indication: BREAST CANCER
     Dosage: ROUTE, FORM AND DOSING AMOUNT-PER PROTOCOL, RECEIVED 4 CYCLES.LAST CYCLE PRIOR TO SAE:29 OCT 2008
     Route: 042
     Dates: start: 20080702
  3. NEULASTA [Suspect]
     Indication: BREAST CANCER
     Dosage: PATIENT RECEIVED 4 CYCLES. LAST CYCLE PRIOR TO SAE:29 OCT 2008
     Route: 065
     Dates: start: 20080702

REACTIONS (1)
  - CONVULSION [None]
